FAERS Safety Report 21378785 (Version 1)
Quarter: 2022Q3

REPORT INFORMATION
  Report Type: Spontaneous
  Country: JP (occurrence: JP)
  Receive Date: 20220927
  Receipt Date: 20220927
  Transmission Date: 20221027
  Serious: Yes (Death, Hospitalization)
  Sender: FDA-Public Use
  Company Number: JP-KERYX BIOPHARMACEUTICALS INC.-JP-AKEB-22-022329

PATIENT

DRUGS (1)
  1. FERRIC CITRATE ANHYDROUS [Suspect]
     Active Substance: FERRIC CITRATE ANHYDROUS
     Indication: Product used for unknown indication
     Dosage: UNK
     Route: 048
     Dates: start: 201511

REACTIONS (2)
  - Death [Fatal]
  - Shunt malfunction [Unknown]

NARRATIVE: CASE EVENT DATE: 20170101
